FAERS Safety Report 9528395 (Version 2)
Quarter: 2013Q3

REPORT INFORMATION
  Report Type: Spontaneous
  Country: NL (occurrence: NL)
  Receive Date: 20130917
  Receipt Date: 20130926
  Transmission Date: 20140515
  Serious: Yes (Other)
  Sender: FDA-Public Use
  Company Number: NL-ASTELLAS-2013EU007836

PATIENT
  Age: 5 Year
  Sex: 0

DRUGS (1)
  1. PROTOPIC [Suspect]
     Indication: ECZEMA
     Dosage: UNK
     Route: 065
     Dates: end: 201309

REACTIONS (1)
  - Lymphadenopathy [Not Recovered/Not Resolved]
